FAERS Safety Report 8835947 (Version 2)
Quarter: 2013Q4

REPORT INFORMATION
  Report Type: Spontaneous
  Country: US (occurrence: US)
  Receive Date: 20121011
  Receipt Date: 20131003
  Transmission Date: 20140711
  Serious: No
  Sender: FDA-Public Use
  Company Number: US-009507513-1210USA003629

PATIENT
  Age: 23 Year
  Sex: Female

DRUGS (1)
  1. MAXALT [Suspect]
     Indication: MIGRAINE
     Dosage: 5 MG
     Route: 048
     Dates: start: 20120508, end: 20120601

REACTIONS (1)
  - Drug ineffective [Unknown]
